FAERS Safety Report 24532453 (Version 1)
Quarter: 2024Q4

REPORT INFORMATION
  Report Type: Spontaneous
  Country: US (occurrence: US)
  Receive Date: 20241022
  Receipt Date: 20241022
  Transmission Date: 20250115
  Serious: No
  Sender: TEVA
  Company Number: US-TEVA-VS-3255956

PATIENT
  Age: 9 Year
  Sex: Female
  Weight: 20.41 kg

DRUGS (2)
  1. METRONIDAZOLE [Suspect]
     Active Substance: METRONIDAZOLE
     Indication: Product used for unknown indication
     Route: 065
  2. METRONIDAZOLE [Suspect]
     Active Substance: METRONIDAZOLE
     Indication: Product used for unknown indication
     Route: 065
     Dates: start: 20241016

REACTIONS (2)
  - Nausea [Not Recovered/Not Resolved]
  - Gastrointestinal examination normal [Not Recovered/Not Resolved]

NARRATIVE: CASE EVENT DATE: 20241017
